FAERS Safety Report 14676180 (Version 1)
Quarter: 2018Q1

REPORT INFORMATION
  Report Type: Spontaneous
  Country: TW (occurrence: TW)
  Receive Date: 20180323
  Receipt Date: 20180323
  Transmission Date: 20180509
  Serious: Yes (Other)
  Sender: FDA-Public Use
  Company Number: PHHY2018TW048519

PATIENT
  Age: 62 Year
  Sex: Male
  Weight: 72.6 kg

DRUGS (4)
  1. TEGRETOL XR [Suspect]
     Active Substance: CARBAMAZEPINE
     Indication: STEVENS-JOHNSON SYNDROME
  2. TEGRETOL XR [Suspect]
     Active Substance: CARBAMAZEPINE
     Indication: SPINAL CORD INJURY
     Dosage: 1 DF, BID
     Route: 048
     Dates: start: 20170726, end: 20170805
  3. TEGRETOL XR [Suspect]
     Active Substance: CARBAMAZEPINE
     Indication: CONJUNCTIVITIS
  4. TEGRETOL XR [Suspect]
     Active Substance: CARBAMAZEPINE
     Indication: HYPOAESTHESIA
     Dosage: 1 DF, QD
     Route: 048
     Dates: start: 20170714, end: 20170725

REACTIONS (7)
  - Stevens-Johnson syndrome [Unknown]
  - Urinary tract infection [Unknown]
  - Pyrexia [Unknown]
  - Rash generalised [Unknown]
  - Ocular hyperaemia [Unknown]
  - Mouth ulceration [Unknown]
  - Conjunctivitis [Unknown]

NARRATIVE: CASE EVENT DATE: 20170807
